FAERS Safety Report 17853648 (Version 3)
Quarter: 2020Q3

REPORT INFORMATION
  Report Type: Spontaneous
  Country: US (occurrence: US)
  Receive Date: 20200602
  Receipt Date: 20200710
  Transmission Date: 20201103
  Serious: No
  Sender: FDA-Public Use
  Company Number: US-009507513-2005USA009902

PATIENT
  Sex: Female

DRUGS (4)
  1. ASMANEX HFA [Suspect]
     Active Substance: MOMETASONE FUROATE
     Indication: ASTHMA
     Dosage: 2 PUFFS IN AM AND 2 PUFFS IN PM/ BETWEEN MARCH 2020 AND APRIL 2020
     Route: 055
     Dates: start: 2020
  2. ASMANEX HFA [Suspect]
     Active Substance: MOMETASONE FUROATE
     Dosage: 2 PUFFS IN AM AND 2 PUFFS IN PM/ SERIAL NUMBER: 100461516247
     Route: 055
     Dates: start: 202004
  3. ASMANEX HFA [Suspect]
     Active Substance: MOMETASONE FUROATE
     Dosage: 2 PUFFS IN AM AND 2 PUFFS IN PM/ SERIAL NUMBER: 100374255320
     Route: 055
     Dates: start: 202005, end: 202006
  4. ASMANEX HFA [Suspect]
     Active Substance: MOMETASONE FUROATE
     Dosage: 2 PUFFS IN AM AND 2 PUFFS IN PM/ SERIAL NUMBER: 100439088250
     Route: 055
     Dates: start: 20200528

REACTIONS (7)
  - Product quality issue [Unknown]
  - Circumstance or information capable of leading to medication error [Unknown]
  - Product dose omission issue [Unknown]
  - Dyspnoea [Recovered/Resolved]
  - Product quality issue [Unknown]
  - Poor quality device used [Unknown]
  - Poor quality device used [Unknown]

NARRATIVE: CASE EVENT DATE: 2020
